FAERS Safety Report 11088395 (Version 1)
Quarter: 2015Q2

REPORT INFORMATION
  Report Type: Spontaneous
  Country: US (occurrence: US)
  Receive Date: 20150504
  Receipt Date: 20150504
  Transmission Date: 20150821
  Serious: Yes (Disabling)
  Sender: FDA-Public Use
  Company Number: US-PFIZER INC-2015152469

PATIENT
  Sex: Male

DRUGS (3)
  1. NEURONTIN [Suspect]
     Active Substance: GABAPENTIN
  2. NORVASC [Suspect]
     Active Substance: AMLODIPINE BESYLATE
  3. LYRICA [Suspect]
     Active Substance: PREGABALIN

REACTIONS (2)
  - Head injury [Unknown]
  - Neuralgia [Unknown]
